FAERS Safety Report 23616200 (Version 1)
Quarter: 2024Q1

REPORT INFORMATION
  Report Type: Spontaneous
  Country: US (occurrence: None)
  Receive Date: 20240308
  Receipt Date: 20240308
  Transmission Date: 20240410
  Serious: Yes (Death)
  Sender: FDA-Public Use
  Company Number: None

PATIENT
  Age: 80 Year
  Sex: Male
  Weight: 90.72 kg

DRUGS (2)
  1. CABOMETYX [Suspect]
     Active Substance: CABOZANTINIB S-MALATE
     Indication: Renal cancer
     Dosage: FREQUENCY : DAILY;?
     Route: 048
     Dates: start: 20230729, end: 20231121
  2. EVEROLIMUS [Suspect]
     Active Substance: EVEROLIMUS
     Indication: Renal cancer
     Dosage: FREQUENCY : DAILY;?
     Route: 048
     Dates: start: 20231214, end: 20240128

REACTIONS (8)
  - Acute respiratory failure [None]
  - Haemothorax [None]
  - Disease progression [None]
  - Therapy cessation [None]
  - Arthralgia [None]
  - Parotitis [None]
  - Inability to afford medication [None]
  - Therapy interrupted [None]

NARRATIVE: CASE EVENT DATE: 20240307
